FAERS Safety Report 18456692 (Version 1)
Quarter: 2020Q4

REPORT INFORMATION
  Report Type: Spontaneous
  Country: US (occurrence: US)
  Receive Date: 20201102
  Receipt Date: 20201102
  Transmission Date: 20210114
  Serious: Yes (Life-Threatening, Hospitalization, Other)
  Sender: FDA-Public Use
  Company Number: None

PATIENT
  Age: 10 Month
  Sex: Male
  Weight: 7.8 kg

DRUGS (1)
  1. BOSENTAN. [Suspect]
     Active Substance: BOSENTAN
     Indication: PULMONARY HYPERTENSION
     Dosage: ?          OTHER ROUTE:GASTROSTOMY TUBE?
     Dates: start: 20200325, end: 20201025

REACTIONS (6)
  - Hyperkalaemia [None]
  - Rhabdomyolysis [None]
  - Acute kidney injury [None]
  - Electrocardiogram T wave peaked [None]
  - Liver injury [None]
  - Oxygen saturation decreased [None]

NARRATIVE: CASE EVENT DATE: 20201023
